FAERS Safety Report 7502909-9 (Version None)
Quarter: 2011Q2

REPORT INFORMATION
  Report Type: 
  Country: None (occurrence: None)
  Receive Date: 20110525
  Receipt Date: 20100928
  Transmission Date: 20111010
  Serious: No
  Sender: FDA-Public Use
  Company Number: US-NOVEN-ALL1-2010-04696

PATIENT
  Sex: Male
  Weight: 33.107 kg

DRUGS (1)
  1. DAYTRANA [Suspect]
     Dosage: 20 MG, 1X/DAY:QD
     Route: 062
     Dates: start: 20070901, end: 20080501

REACTIONS (2)
  - INITIAL INSOMNIA [None]
  - ABDOMINAL DISCOMFORT [None]
